FAERS Safety Report 19598487 (Version 4)
Quarter: 2022Q4

REPORT INFORMATION
  Report Type: Report from Study
  Country: ES (occurrence: ES)
  Receive Date: 20210722
  Receipt Date: 20221115
  Transmission Date: 20230112
  Serious: Yes (Other)
  Sender: FDA-Public Use
  Company Number: ES-TAKEDA-2021TUS043957

PATIENT
  Age: 6 Year
  Sex: Male

DRUGS (32)
  1. TEDUGLUTIDE [Suspect]
     Active Substance: TEDUGLUTIDE
     Indication: Short-bowel syndrome
     Dosage: 8 MILLIGRAM, QD
     Route: 042
     Dates: start: 20170820
  2. TEDUGLUTIDE [Suspect]
     Active Substance: TEDUGLUTIDE
     Indication: Short-bowel syndrome
     Dosage: 8 MILLIGRAM, QD
     Route: 042
     Dates: start: 20170820
  3. TEDUGLUTIDE [Suspect]
     Active Substance: TEDUGLUTIDE
     Indication: Short-bowel syndrome
     Dosage: 8 MILLIGRAM, QD
     Route: 042
     Dates: start: 20170820
  4. TEDUGLUTIDE [Suspect]
     Active Substance: TEDUGLUTIDE
     Indication: Short-bowel syndrome
     Dosage: 8 MILLIGRAM, QD
     Route: 042
     Dates: start: 20170820
  5. ACETAMINOPHEN [Concomitant]
     Active Substance: ACETAMINOPHEN
     Indication: Abdominal pain
     Dosage: 170 MILLIGRAM
     Route: 048
     Dates: start: 20210212, end: 20210215
  6. URSODIOL [Concomitant]
     Active Substance: URSODIOL
     Indication: Hyperbilirubinaemia
     Dosage: 150 MILLIGRAM, TID
     Route: 048
     Dates: start: 20201110, end: 20210602
  7. FLUTICASONE [Concomitant]
     Active Substance: FLUTICASONE
     Indication: Rhinitis
     Dosage: 27.50 MICROGRAM, QD
     Route: 042
     Dates: start: 20200928, end: 20201123
  8. FLUTICASONE [Concomitant]
     Active Substance: FLUTICASONE
     Dosage: 27.50 MICROGRAM, QD
     Route: 045
     Dates: start: 20200928, end: 20201123
  9. URSODIOL [Concomitant]
     Active Substance: URSODIOL
     Indication: Liver disorder
     Dosage: 150 MILLIGRAM, TID
     Route: 048
     Dates: start: 20201023, end: 20210602
  10. VITAMIN A + E [Concomitant]
     Indication: Hypovitaminosis
     Dosage: 1 DOSAGE FORM, QD
     Route: 048
     Dates: start: 20210630, end: 20220603
  11. CYANOCOBALAMIN [Concomitant]
     Active Substance: CYANOCOBALAMIN
     Indication: Blood homocysteine
     Dosage: 1 MILLIGRAM, 1/WEEK
     Route: 048
     Dates: start: 20220418
  12. CYANOCOBALAMIN [Concomitant]
     Active Substance: CYANOCOBALAMIN
     Dosage: 1 MILLIGRAM, 1/WEEK
     Route: 048
     Dates: start: 20221024
  13. VITAMIN E [Concomitant]
     Active Substance: .ALPHA.-TOCOPHEROL
     Indication: Hypovitaminosis
     Dosage: 50 MILLIGRAM, QD
     Route: 048
     Dates: start: 20220603
  14. VITAMIN A [Concomitant]
     Active Substance: VITAMIN A
     Indication: Hypovitaminosis
     Dosage: 10000 INTERNATIONAL UNIT, 2/MONTH
     Route: 030
     Dates: start: 20220603
  15. METRONIDAZOLE [Concomitant]
     Active Substance: METRONIDAZOLE
     Indication: Bacterial infection
     Dosage: 10 MILLIGRAM/KILOGRAM
     Route: 050
     Dates: start: 20211220
  16. PHYTONADIONE [Concomitant]
     Active Substance: PHYTONADIONE
     Indication: Vitamin K deficiency
     Dosage: 10 MILLIGRAM, 1/WEEK
     Route: 048
     Dates: start: 20221024
  17. VANCOMICINA ABBOTT [Concomitant]
     Indication: Vascular device infection
     Dosage: 170 MILLIGRAM, QID
     Route: 042
     Dates: start: 20210511, end: 20210512
  18. CLOXACILLIN [Concomitant]
     Active Substance: CLOXACILLIN
     Indication: Vascular device infection
     Dosage: 400 MILLIGRAM, QID
     Route: 042
     Dates: start: 20210512, end: 20210512
  19. CEFAZOLIN SODIUM [Concomitant]
     Active Substance: CEFAZOLIN SODIUM
     Indication: Vascular device infection
     Dosage: 850 MILLIGRAM, TID
     Route: 042
     Dates: start: 20210514, end: 20210520
  20. CEFAZOLIN SODIUM [Concomitant]
     Active Substance: CEFAZOLIN SODIUM
     Dosage: 850 MILLIGRAM, TID
     Route: 042
     Dates: start: 20210528, end: 20210602
  21. TEICOPLANIN [Concomitant]
     Active Substance: TEICOPLANIN
     Indication: Vascular device infection
     Dosage: 170 MILLIGRAM, QD
     Route: 042
     Dates: start: 20210520, end: 20210527
  22. CEFADROXIL [Concomitant]
     Active Substance: CEFADROXIL
     Indication: Vascular device infection
     Dosage: 420 MILLIGRAM, BID
     Route: 048
     Dates: start: 20210602, end: 20210607
  23. AUXINA A E [Concomitant]
     Indication: Vitamin A deficiency
     Dosage: 50000 INTERNATIONAL UNIT, QOD
     Route: 048
     Dates: start: 20220214, end: 20220603
  24. LOPERAMIDE HYDROCHLORIDE [Concomitant]
     Active Substance: LOPERAMIDE HYDROCHLORIDE
     Indication: Diarrhoea
     Dosage: 1 MILLIGRAM
     Route: 048
     Dates: start: 20150108, end: 20220603
  25. KONAKION [Concomitant]
     Active Substance: PHYTONADIONE
     Indication: Coagulopathy
     Dosage: 2 MILLIGRAM, QD
     Route: 048
     Dates: start: 20181018, end: 20200519
  26. ENOXAPARIN SODIUM [Concomitant]
     Active Substance: ENOXAPARIN SODIUM
     Dosage: 1 MILLIGRAM/KILOGRAM, BID
     Route: 058
     Dates: start: 20161207, end: 20200528
  27. TAUROLIDINA [Concomitant]
     Indication: Infection prophylaxis
     Dosage: 1 MILLILITER
     Route: 050
     Dates: start: 20150601, end: 20210528
  28. PIMECROLIMUS [Concomitant]
     Active Substance: PIMECROLIMUS
     Indication: Dermatitis
     Dosage: UNK UNK, QD
     Route: 061
     Dates: start: 20190805
  29. FERROUS SULFATE [Concomitant]
     Active Substance: FERROUS SULFATE
     Indication: Anaemia
     Dosage: 5 MILLIGRAM/KILOGRAM, QD
     Route: 048
     Dates: start: 20191010, end: 20200519
  30. CHOLECALCIFEROL [Concomitant]
     Active Substance: CHOLECALCIFEROL
     Indication: Vitamin D deficiency
     Dosage: 1200 INTERNATIONAL UNIT, QD
     Route: 048
     Dates: start: 20180702
  31. CALCIUM CARBONATE [Concomitant]
     Active Substance: CALCIUM CARBONATE
     Indication: Osteopenia
     Dosage: 1500 MILLIGRAM, QD
     Route: 048
     Dates: start: 20180402
  32. TINZAPARIN SODIUM [Concomitant]
     Active Substance: TINZAPARIN SODIUM
     Indication: Venous thrombosis
     Dosage: 2500 INTERNATIONAL UNIT, QD
     Route: 058
     Dates: start: 20200528, end: 20220215

REACTIONS (1)
  - Hyperbilirubinaemia [Recovered/Resolved]

NARRATIVE: CASE EVENT DATE: 20201016
